FAERS Safety Report 5821893 (Version 7)
Quarter: 2014Q3

REPORT INFORMATION
  Report Type: Spontaneous
  Country: BR (occurrence: BR)
  Receive Date: 20050620
  Receipt Date: 20140929
  Transmission Date: 20150326
  Serious: Yes (Life-Threatening, Hospitalization, Other)
  Sender: FDA-Public Use
  Company Number: BR-ROCHE-407669

PATIENT
  Age: 55 Year
  Sex: Male
  Weight: 62 kg

DRUGS (3)
  1. PEGASYS [Suspect]
     Active Substance: PEGINTERFERON ALFA-2A
     Indication: HEPATITIS C
     Dosage: FORM STRENGTH=180 MCG/ML
     Route: 058
  2. PEGASYS [Suspect]
     Active Substance: PEGINTERFERON ALFA-2A
     Route: 058
     Dates: start: 200304, end: 200306
  3. RIBAVIRIN. [Suspect]
     Active Substance: RIBAVIRIN
     Indication: PRODUCT USED FOR UNKNOWN INDICATION
     Route: 065

REACTIONS (12)
  - Haematemesis [Recovered/Resolved]
  - Syncope [Recovered/Resolved]
  - Loss of consciousness [Recovered/Resolved]
  - Retinal disorder [Recovered/Resolved]
  - Convulsion [Recovered/Resolved]
  - Coma [Recovered/Resolved]
  - Oesophageal varices haemorrhage [Recovered/Resolved]
  - Renal failure [Recovered/Resolved]
  - Melaena [Recovered/Resolved]
  - Varices oesophageal [Recovered/Resolved]
  - Retinal tear [Recovered/Resolved]
  - Cataract [Recovered/Resolved]

NARRATIVE: CASE EVENT DATE: 200301
